FAERS Safety Report 7416538-9 (Version None)
Quarter: 2011Q2

REPORT INFORMATION
  Report Type: 
  Country: None (occurrence: None)
  Receive Date: 20110414
  Receipt Date: 20110409
  Transmission Date: 20111010
  Serious: Yes (Death, Hospitalization)
  Sender: FDA-Public Use
  Company Number: US-BRISTOL-MYERS SQUIBB COMPANY-15654072

PATIENT
  Age: 60 Year
  Sex: Male
  Weight: 76 kg

DRUGS (8)
  1. NORVASC [Concomitant]
  2. OXYCONTIN [Concomitant]
  3. IPILIMUMAB [Suspect]
     Indication: MALIGNANT MELANOMA
     Dosage: 10MG/KG OVER 90MINS ONDAY 1
     Route: 042
     Dates: start: 20110310, end: 20110310
  4. OXYCODONE [Concomitant]
     Dosage: PRN
  5. TOPROL-XL [Concomitant]
  6. ALLOPURINOL [Concomitant]
  7. NORMAL SALINE [Concomitant]
     Dosage: 48HRS AT 60MINS/HR
     Route: 042
  8. COMPAZINE [Concomitant]
     Dosage: PRN

REACTIONS (5)
  - LEUKOCYTOSIS [None]
  - ABDOMINAL PAIN [None]
  - BLOOD ALKALINE PHOSPHATASE INCREASED [None]
  - CARDIAC ARREST [None]
  - HYPONATRAEMIA [None]
